FAERS Safety Report 4319704-4 (Version None)
Quarter: 2004Q1

REPORT INFORMATION
  Report Type: 
  Country: None (occurrence: None)
  Receive Date: 20040319
  Receipt Date: 20040315
  Transmission Date: 20041129
  Serious: Yes (Hospitalization)
  Sender: FDA-Public Use
  Company Number: US-BRISTOL-MYERS SQUIBB COMPANY-12533113

PATIENT
  Age: 65 Year
  Sex: Female
  Weight: 84 kg

DRUGS (13)
  1. DEFINITY [Suspect]
     Dates: start: 20040309, end: 20040309
  2. LEXAPRO [Concomitant]
  3. ASPIRIN [Concomitant]
  4. LISINOPRIL [Concomitant]
  5. OS-CAL [Concomitant]
  6. NORVASC [Concomitant]
  7. PREVACID [Concomitant]
  8. LIPITOR [Concomitant]
  9. FOSAMAX [Concomitant]
  10. SINGULAIR [Concomitant]
  11. PLAVIX [Concomitant]
  12. FERROUS SULFATE TAB [Concomitant]
  13. ADVAIR DISKUS 100/50 [Concomitant]

REACTIONS (3)
  - PRURITUS [None]
  - URTICARIA [None]
  - WHEEZING [None]
